FAERS Safety Report 23924583 (Version 1)
Quarter: 2024Q2

REPORT INFORMATION
  Report Type: Spontaneous
  Country: US (occurrence: US)
  Receive Date: 20240531
  Receipt Date: 20240531
  Transmission Date: 20240716
  Serious: No
  Sender: FDA-Public Use
  Company Number: US-BAYER-2024A074662

PATIENT
  Age: 54 Year
  Sex: Female

DRUGS (2)
  1. MIRENA [Suspect]
     Active Substance: LEVONORGESTREL
     Indication: Uterine haemorrhage
     Dosage: 20?G/DAY
     Route: 015
     Dates: start: 20190202
  2. ESTROGENS [Suspect]
     Active Substance: ESTROGENS
     Route: 062

REACTIONS (2)
  - Vaginal haemorrhage [Not Recovered/Not Resolved]
  - Device use issue [None]
